FAERS Safety Report 18820647 (Version 2)
Quarter: 2021Q1

REPORT INFORMATION
  Report Type: Report from Study
  Country: US (occurrence: US)
  Receive Date: 20210202
  Receipt Date: 20210203
  Transmission Date: 20210419
  Serious: Yes (Life-Threatening)
  Sender: FDA-Public Use
  Company Number: US-UCBSA-2020041586

PATIENT
  Age: 66 Year
  Sex: Female

DRUGS (6)
  1. CERTOLIZUMAB PEGOL [Suspect]
     Active Substance: CERTOLIZUMAB PEGOL
     Dosage: 400 MILLIGRAM, MONTHLY (QM)
     Dates: start: 2020, end: 2020
  2. PACERONE [Concomitant]
     Active Substance: AMIODARONE HYDROCHLORIDE
     Indication: PRODUCT USED FOR UNKNOWN INDICATION
     Dosage: UNK
  3. CERTOLIZUMAB PEGOL [Suspect]
     Active Substance: CERTOLIZUMAB PEGOL
     Dosage: UNK
     Dates: start: 2020, end: 202101
  4. CORTISONE [Concomitant]
     Active Substance: CORTISONE
     Indication: DRY EYE
  5. TYLENOL [Concomitant]
     Active Substance: ACETAMINOPHEN
     Indication: PRODUCT USED FOR UNKNOWN INDICATION
     Dosage: AS NEEDED
  6. CERTOLIZUMAB PEGOL [Suspect]
     Active Substance: CERTOLIZUMAB PEGOL
     Indication: RHEUMATOID ARTHRITIS
     Dosage: 400 MILLIGRAM, EV 2 WEEKS(QOW)
     Dates: start: 20200924, end: 2020

REACTIONS (9)
  - Bronchitis [Not Recovered/Not Resolved]
  - Therapy interrupted [Unknown]
  - Fibromyalgia [Not Recovered/Not Resolved]
  - Dry eye [Recovering/Resolving]
  - Superficial injury of eye [Recovering/Resolving]
  - Arthralgia [Not Recovered/Not Resolved]
  - Asthma [Not Recovered/Not Resolved]
  - Eye inflammation [Recovering/Resolving]
  - Frequent bowel movements [Recovering/Resolving]

NARRATIVE: CASE EVENT DATE: 2020
